FAERS Safety Report 14166616 (Version 1)
Quarter: 2017Q4

REPORT INFORMATION
  Report Type: Spontaneous
  Country: US (occurrence: US)
  Receive Date: 20171106
  Receipt Date: 20171106
  Transmission Date: 20180321
  Serious: Yes (Hospitalization)
  Sender: FDA-Public Use
  Company Number: None

PATIENT
  Age: 78 Year
  Sex: Male
  Weight: 150.2 kg

DRUGS (9)
  1. CABAZITAXEL [Suspect]
     Active Substance: CABAZITAXEL
     Indication: PROSTATE CANCER
     Dosage: ?          OTHER FREQUENCY:Q3W;?
     Route: 041
     Dates: start: 20170914, end: 20171026
  2. CARBOPLATIN. [Suspect]
     Active Substance: CARBOPLATIN
     Indication: PROSTATE CANCER
     Route: 041
     Dates: start: 20170914, end: 20171026
  3. TELMISARTAN. [Concomitant]
     Active Substance: TELMISARTAN
  4. FUROSEMIDE. [Concomitant]
     Active Substance: FUROSEMIDE
  5. NEBI VILOL [Concomitant]
  6. AMPLODIPINE [Concomitant]
  7. METROPROLOL SUCCINATE XL [Concomitant]
  8. POTASSIUM CHLORIDE. [Concomitant]
     Active Substance: POTASSIUM CHLORIDE
  9. APIXABAN [Concomitant]
     Active Substance: APIXABAN

REACTIONS (2)
  - Presyncope [None]
  - Dizziness [None]

NARRATIVE: CASE EVENT DATE: 20171103
